FAERS Safety Report 9492789 (Version 2)
Quarter: 2013Q4

REPORT INFORMATION
  Report Type: Spontaneous
  Country: US (occurrence: US)
  Receive Date: 20130830
  Receipt Date: 20131003
  Transmission Date: 20140711
  Serious: No
  Sender: FDA-Public Use
  Company Number: US-PFIZER INC-2013241818

PATIENT
  Age: 56 Year
  Sex: Female

DRUGS (10)
  1. XELJANZ [Suspect]
     Indication: RHEUMATOID ARTHRITIS
     Dosage: 5 MG, 2X/DAY
     Route: 048
     Dates: start: 201306
  2. EFFEXOR [Concomitant]
     Dosage: 100 MG, UNK
  3. MEDROL [Concomitant]
     Dosage: 16 MG, UNK
  4. PREMARIN [Concomitant]
     Dosage: 0.9 MG, UNK
  5. IMITREX [Concomitant]
     Dosage: 25 MG, UNK
  6. NEXIUM [Concomitant]
     Dosage: 20 MG, UNK
  7. FIORICET [Concomitant]
     Dosage: UNK
  8. VITAMIN D [Concomitant]
     Dosage: 1000 IU, UNK
  9. CALCIUM [Concomitant]
     Dosage: UNK
  10. DIOVAN [Concomitant]
     Dosage: 80 MG, UNK

REACTIONS (3)
  - Increased appetite [Unknown]
  - Weight increased [Unknown]
  - Hyperphagia [Unknown]
